FAERS Safety Report 7790091-2 (Version None)
Quarter: 2011Q3

REPORT INFORMATION
  Report Type: 
  Country: None (occurrence: None)
  Receive Date: 20110930
  Receipt Date: 20101029
  Transmission Date: 20111222
  Serious: No
  Sender: FDA-Public Use
  Company Number: US-ASTRAZENECA-2008UW15367

PATIENT
  Age: 70 Year
  Sex: Female

DRUGS (5)
  1. ARIMIDEX [Suspect]
     Indication: BREAST CANCER STAGE I
     Route: 048
     Dates: start: 20080401, end: 20100901
  2. LISINOPRIL AND HYDROCHLOROTHIAZIDE [Concomitant]
  3. LIPITOR [Concomitant]
  4. ARIMIDEX [Suspect]
     Dosage: DAILY
     Route: 048
     Dates: start: 20100901
  5. METFORMIN HCL [Concomitant]

REACTIONS (10)
  - HEADACHE [None]
  - NAUSEA [None]
  - BACK PAIN [None]
  - INSOMNIA [None]
  - DIARRHOEA [None]
  - ARTHRITIS [None]
  - COUGH [None]
  - ARTHRALGIA [None]
  - CONSTIPATION [None]
  - HOT FLUSH [None]
